FAERS Safety Report 25689447 (Version 1)
Quarter: 2025Q3

REPORT INFORMATION
  Report Type: Spontaneous
  Country: GB (occurrence: GB)
  Receive Date: 20250818
  Receipt Date: 20250818
  Transmission Date: 20251021
  Serious: Yes (Hospitalization)
  Sender: ROCHE
  Company Number: GB-ROCHE-10000362030

PATIENT
  Age: 75 Year
  Sex: Female

DRUGS (2)
  1. ALTEPLASE [Suspect]
     Active Substance: ALTEPLASE
     Indication: Infectious pleural effusion
     Route: 034
  2. DORNASE ALFA [Suspect]
     Active Substance: DORNASE ALFA
     Indication: Infectious pleural effusion
     Route: 034

REACTIONS (2)
  - Pericardial effusion [Recovered/Resolved]
  - Off label use [Unknown]
